FAERS Safety Report 25986892 (Version 2)
Quarter: 2025Q4

REPORT INFORMATION
  Report Type: Spontaneous
  Country: JP (occurrence: JP)
  Receive Date: 20251102
  Receipt Date: 20251120
  Transmission Date: 20260118
  Serious: Yes (Other)
  Sender: JOHNSON AND JOHNSON
  Company Number: JP-JNJFOC-20251039590

PATIENT
  Age: 8 Decade
  Sex: Male

DRUGS (3)
  1. RYBREVANT [Suspect]
     Active Substance: AMIVANTAMAB-VMJW
     Indication: EGFR gene mutation
     Dosage: C1D1
     Route: 041
     Dates: start: 20251028, end: 20251028
  2. CARBOPLATIN [Concomitant]
     Active Substance: CARBOPLATIN
     Indication: EGFR gene mutation
     Dosage: AUC5
     Route: 041
     Dates: start: 20251028
  3. PEMETREXED [Concomitant]
     Active Substance: PEMETREXED
     Indication: EGFR gene mutation
     Route: 041
     Dates: start: 20251028

REACTIONS (3)
  - Infusion related reaction [Recovering/Resolving]
  - Respiratory failure [Recovering/Resolving]
  - Wheezing [Recovering/Resolving]

NARRATIVE: CASE EVENT DATE: 20251028
